FAERS Safety Report 14502765 (Version 2)
Quarter: 2018Q1

REPORT INFORMATION
  Report Type: Other
  Country: GB (occurrence: IT)
  Receive Date: 20180208
  Receipt Date: 20180214
  Transmission Date: 20180509
  Serious: Yes (Life-Threatening, Hospitalization, Congenital Anomaly, Other)
  Sender: FDA-Public Use
  Company Number: GB-DIMETHAID UK LIMITED-DIM-001611-2017

PATIENT
  Age: 33 Week
  Sex: Female
  Weight: 1.97 kg

DRUGS (5)
  1. NIMESULIDE [Suspect]
     Active Substance: NIMESULIDE
     Indication: SCIATICA
     Dosage: 1 DF (1 UG/LITRE), QD
     Route: 064
  2. PENNSAID [Suspect]
     Active Substance: DICLOFENAC SODIUM
     Indication: SCIATICA
     Dosage: 75 MG, QD
     Route: 064
  3. NIMESULIDE [Suspect]
     Active Substance: NIMESULIDE
     Dosage: 100 MG, QD
     Route: 064
  4. PARACETAMOL [Suspect]
     Active Substance: ACETAMINOPHEN
     Indication: SCIATICA
     Dosage: 1 DF (1 UG/LITRE), QD
     Route: 064
  5. PARACETAMOL [Suspect]
     Active Substance: ACETAMINOPHEN
     Dosage: 1 DF, QD
     Route: 064

REACTIONS (12)
  - Premature baby [Unknown]
  - Blood creatinine increased [Unknown]
  - Ductus arteriosus stenosis foetal [Recovered/Resolved]
  - Bradycardia neonatal [Recovered/Resolved]
  - Neonatal respiratory distress syndrome [Recovered/Resolved]
  - Emphysema [Unknown]
  - Ductus arteriosus premature closure [Unknown]
  - Cyanosis neonatal [Recovered/Resolved]
  - Neonatal respiratory acidosis [Recovered/Resolved]
  - Renal failure neonatal [Unknown]
  - Polyuria [Unknown]
  - Foetal exposure during pregnancy [Recovered/Resolved]
